FAERS Safety Report 25220883 (Version 1)
Quarter: 2025Q2

REPORT INFORMATION
  Report Type: Spontaneous
  Country: US (occurrence: None)
  Receive Date: 20250420
  Receipt Date: 20250420
  Transmission Date: 20250717
  Serious: Yes (Other)
  Sender: FDA-CTU
  Company Number: None

PATIENT
  Age: 65 Year
  Sex: Female
  Weight: 93.9 kg

DRUGS (1)
  1. DOCETAXEL [Suspect]
     Active Substance: DOCETAXEL
     Route: 042

REACTIONS (8)
  - Feeling hot [None]
  - Nausea [None]
  - Dyspnoea [None]
  - Infusion related reaction [None]
  - Confusional state [None]
  - Communication disorder [None]
  - Heart rate irregular [None]
  - Electrocardiogram abnormal [None]

NARRATIVE: CASE EVENT DATE: 20250414
